FAERS Safety Report 6715054-7 (Version None)
Quarter: 2010Q2

REPORT INFORMATION
  Report Type: 
  Country: None (occurrence: None)
  Receive Date: 20100507
  Receipt Date: 20100428
  Transmission Date: 20101027
  Serious: Yes (Hospitalization)
  Sender: FDA-Public Use
  Company Number: IT-PFIZER INC-2010037451

PATIENT
  Age: 61 Year
  Sex: Male

DRUGS (6)
  1. SUTENT [Suspect]
     Indication: METASTATIC RENAL CELL CARCINOMA
     Dosage: 50 MG, 1X/DAY
     Route: 048
  2. OXYCODONE HYDROCHLORIDE [Suspect]
     Indication: ANALGESIC THERAPY
     Dosage: 20 MG, CYCLIC, X2
  3. PARACETAMOL [Suspect]
     Dosage: 2000 MG, 1X/DAY
  4. PREDNISONE [Concomitant]
     Dosage: 25 MG, UNK
     Route: 048
  5. DICLOREUM [Concomitant]
     Dosage: 1 UNIT DOSE
  6. CALCIUM CARBONATE/COLECALCIFEROL [Concomitant]

REACTIONS (2)
  - HAEMATURIA [None]
  - PETECHIAE [None]
